FAERS Safety Report 5789463-7 (Version None)
Quarter: 2008Q2

REPORT INFORMATION
  Report Type: 
  Country: None (occurrence: None)
  Receive Date: 20080623
  Receipt Date: 20080610
  Transmission Date: 20081010
  Serious: Yes (Death)
  Sender: FDA-Public Use
  Company Number: 100#01#2008-03098

PATIENT
  Age: 3 Year
  Sex: Female

DRUGS (1)
  1. SUMAMED(TABLETS) (AZITHROMYCIN) [Suspect]
     Indication: NASOPHARYNGITIS
     Dosage: (ONCE); ONCE
     Route: 048
     Dates: start: 20080601, end: 20080601

REACTIONS (2)
  - ASPHYXIA [None]
  - FOREIGN BODY TRAUMA [None]
